FAERS Safety Report 9335244 (Version 3)
Quarter: 2014Q1

REPORT INFORMATION
  Report Type: Report from Study
  Country: US (occurrence: US)
  Receive Date: 20130606
  Receipt Date: 20140206
  Transmission Date: 20141002
  Serious: Yes (Death, Other)
  Sender: FDA-Public Use
  Company Number: US-ALEXION-A201301249

PATIENT
  Age: 63 Year
  Sex: Male
  Weight: 103 kg

DRUGS (4)
  1. SOLIRIS [Suspect]
     Indication: HAEMOLYTIC URAEMIC SYNDROME
     Dosage: 900 MG, UNK
     Route: 042
     Dates: start: 20130209
  2. SOLIRIS [Suspect]
     Dosage: 600 MG, UNK
     Route: 042
     Dates: start: 20130219
  3. SOLIRIS [Suspect]
     Dosage: 900 MG, UNK
     Route: 042
     Dates: start: 20130226
  4. SOLIRIS [Suspect]
     Dosage: 1200 MG, Q2W
     Route: 042
     Dates: start: 20130311, end: 20130507

REACTIONS (4)
  - Death [Fatal]
  - Transplant rejection [Unknown]
  - Renal transplant [Unknown]
  - Oedema [Unknown]
